FAERS Safety Report 5082130-7 (Version None)
Quarter: 2006Q3

REPORT INFORMATION
  Report Type: 
  Country: None (occurrence: None)
  Receive Date: 20060814
  Receipt Date: 20040212
  Transmission Date: 20061208
  Serious: Yes (Other)
  Sender: FDA-Public Use
  Company Number: CHNY2004BR00831

PATIENT
  Age: 19 Year
  Sex: Female

DRUGS (2)
  1. CIBALENA (NCH) (ACETAMINOPHEN (PARACETAMOL), ACETYLSALICYLIC ACID, CAF [Suspect]
     Indication: HEADACHE
     Dosage: SEE IMAGE, ORAL
     Route: 048
     Dates: start: 20040210, end: 20040210
  2. CIBALENA (NCH) (ACETAMINOPHEN (PARACETAMOL), ACETYLSALICYLIC ACID, CAF [Suspect]
     Indication: HEADACHE
     Dosage: SEE IMAGE, ORAL
     Route: 048
     Dates: start: 20040211, end: 20040211

REACTIONS (6)
  - ABDOMINAL PAIN [None]
  - DRUG EXPOSURE DURING PREGNANCY [None]
  - DRUG INEFFECTIVE [None]
  - PAIN [None]
  - PREMATURE LABOUR [None]
  - VAGINAL HAEMORRHAGE [None]
